FAERS Safety Report 10252850 (Version 2)
Quarter: 2014Q2

REPORT INFORMATION
  Report Type: Spontaneous
  Country: BR (occurrence: BR)
  Receive Date: 20140623
  Receipt Date: 20140623
  Transmission Date: 20141212
  Serious: Yes (Other)
  Sender: FDA-Public Use
  Company Number: BR-PFIZER INC-2011281543

PATIENT
  Age: 55 Year
  Sex: Female
  Weight: 71 kg

DRUGS (13)
  1. CHAMPIX [Suspect]
     Indication: SMOKING CESSATION THERAPY
     Dosage: 0.5 MG, 1X/DAY
     Route: 048
     Dates: start: 20111114, end: 201111
  2. CHAMPIX [Suspect]
     Dosage: 1 CAPSULE, 2X/DAY
     Route: 048
     Dates: start: 201111
  3. ANGELIQ [Concomitant]
     Indication: BLOOD CALCIUM DECREASED
     Dosage: ONE TABLET ONCE DAILY
     Dates: start: 2006
  4. SERTRALINE [Concomitant]
     Indication: SERUM SEROTONIN DECREASED
     Dosage: 50 MG, 2X/DAY
     Dates: start: 1999
  5. SERTRALINE [Concomitant]
     Indication: DEPRESSION
  6. NEOZINE [Concomitant]
     Indication: SLEEP DISORDER
     Dosage: 40 DROPS ONCE AT NIGHT
     Dates: start: 1999
  7. OSCAL 500-D [Concomitant]
     Indication: OSTEOPENIA
     Dosage: 1 MG, 1X/DAY
     Dates: start: 2003
  8. SIMVASTATIN [Concomitant]
     Indication: BLOOD CHOLESTEROL ABNORMAL
     Dosage: 20 MG, 1X/DAY
     Dates: start: 2005
  9. TIMOLOL [Concomitant]
     Indication: INTRAOCULAR PRESSURE INCREASED
     Dosage: 1 DROP ONCE DAILY
     Dates: start: 2005
  10. VALIUM [Concomitant]
     Indication: ANXIETY
     Dosage: 10 MG, ONCE DAILY
     Dates: start: 1999
  11. XENICAL [Concomitant]
     Indication: BLOOD CHOLESTEROL ABNORMAL
     Dosage: 120 MG, 2X/DAY
     Dates: start: 20111114
  12. XENICAL [Concomitant]
     Indication: WEIGHT CONTROL
  13. XENICAL [Concomitant]
     Indication: BLOOD TRIGLYCERIDES ABNORMAL

REACTIONS (11)
  - Laryngeal cancer [Unknown]
  - Laryngeal leukoplakia [Unknown]
  - Disturbance in attention [Not Recovered/Not Resolved]
  - Lethargy [Not Recovered/Not Resolved]
  - Irritability [Recovered/Resolved]
  - Nausea [Recovered/Resolved]
  - Dizziness [Recovered/Resolved]
  - Headache [Recovered/Resolved]
  - Abdominal distension [Not Recovered/Not Resolved]
  - Weight decreased [Not Recovered/Not Resolved]
  - Anxiety [Not Recovered/Not Resolved]
